FAERS Safety Report 23122342 (Version 2)
Quarter: 2023Q4

REPORT INFORMATION
  Report Type: Spontaneous
  Country: US (occurrence: US)
  Receive Date: 20231030
  Receipt Date: 20231101
  Transmission Date: 20240110
  Serious: Yes (Hospitalization, Other)
  Sender: FDA-Public Use
  Company Number: US-SA-SAC20231026001467

PATIENT
  Age: 70 Year
  Sex: Male

DRUGS (1)
  1. DUPIXENT [Suspect]
     Active Substance: DUPILUMAB
     Indication: Asthma
     Dosage: 300 MG, QOW
     Route: 058

REACTIONS (11)
  - Nephrolithiasis [Unknown]
  - Kidney infection [Unknown]
  - Fall [Unknown]
  - Fluid retention [Unknown]
  - Sepsis [Unknown]
  - Pyrexia [Unknown]
  - Hypersomnia [Unknown]
  - Hypertension [Unknown]
  - Asthenia [Unknown]
  - Renal failure [Unknown]
  - Weight decreased [Unknown]

NARRATIVE: CASE EVENT DATE: 20230101
